FAERS Safety Report 17323562 (Version 1)
Quarter: 2020Q1

REPORT INFORMATION
  Report Type: Spontaneous
  Country: CA (occurrence: CA)
  Receive Date: 20200127
  Receipt Date: 20200127
  Transmission Date: 20200409
  Serious: Yes (Hospitalization, Other)
  Sender: FDA-Public Use
  Company Number: CA-AUROBINDO-AUR-APL-2019-090936

PATIENT
  Age: 54 Year
  Sex: Female

DRUGS (10)
  1. VERAPAMIL [Concomitant]
     Active Substance: VERAPAMIL HYDROCHLORIDE
     Indication: PRODUCT USED FOR UNKNOWN INDICATION
     Dosage: 120 MILLIGRAM, ONCE A DAY
     Route: 065
  2. SANDOSTATIN [Suspect]
     Active Substance: OCTREOTIDE ACETATE
     Indication: CARCINOID TUMOUR
     Dosage: UNK
     Route: 058
  3. OXYCONTIN [Concomitant]
     Active Substance: OXYCODONE HYDROCHLORIDE
     Indication: PRODUCT USED FOR UNKNOWN INDICATION
     Dosage: 20 MILLIGRAM
     Route: 065
  4. SANDOSTATIN [Suspect]
     Active Substance: OCTREOTIDE ACETATE
     Indication: CARCINOID TUMOUR
     Dosage: 30 MILLIGRAM, EVERY MONTH
     Route: 030
  5. ACETAMINOPHEN W/OXYCODONE [Concomitant]
     Active Substance: ACETAMINOPHEN\OXYCODONE HYDROCHLORIDE
     Indication: PRODUCT USED FOR UNKNOWN INDICATION
     Dosage: 325 MILLIGRAM
     Route: 065
  6. FENTANYL. [Concomitant]
     Active Substance: FENTANYL
     Indication: PRODUCT USED FOR UNKNOWN INDICATION
     Dosage: 25 MICROGRAM
     Route: 065
  7. CYCLOBENZAPRINE. [Concomitant]
     Active Substance: CYCLOBENZAPRINE
     Indication: PRODUCT USED FOR UNKNOWN INDICATION
     Dosage: 10 MILLIGRAM
     Route: 065
  8. PANTOPRAZOLE [Suspect]
     Active Substance: PANTOPRAZOLE
     Indication: NAUSEA
     Dosage: 40 MILLIGRAM, ONCE A DAY
     Route: 065
  9. AMOXICILLIN. [Concomitant]
     Active Substance: AMOXICILLIN
     Indication: PRODUCT USED FOR UNKNOWN INDICATION
     Dosage: 500 MILLIGRAM, 3 TIMES A DAY
     Route: 065
  10. TRAZODONE [Concomitant]
     Active Substance: TRAZODONE HYDROCHLORIDE
     Indication: PRODUCT USED FOR UNKNOWN INDICATION
     Dosage: 50 MILLIGRAM
     Route: 065

REACTIONS (27)
  - Abdominal discomfort [Unknown]
  - Abdominal pain [Unknown]
  - Diarrhoea [Unknown]
  - Faeces pale [Unknown]
  - Sinusitis [Unknown]
  - Headache [Unknown]
  - Hepatic enzyme increased [Unknown]
  - Flushing [Unknown]
  - Injection site pain [Unknown]
  - Muscle strain [Unknown]
  - Drug ineffective [Unknown]
  - Yellow skin [Unknown]
  - Pain [Unknown]
  - Blood pressure increased [Unknown]
  - Asthenia [Unknown]
  - Nausea [Unknown]
  - Body temperature decreased [Unknown]
  - Bile duct stone [Unknown]
  - Gallbladder oedema [Unknown]
  - Injection site bruising [Unknown]
  - Back pain [Unknown]
  - Pyrexia [Unknown]
  - Abdominal pain upper [Unknown]
  - Inappropriate schedule of product administration [Unknown]
  - Migraine [Unknown]
  - Malaise [Unknown]
  - Fatigue [Unknown]
